FAERS Safety Report 17960826 (Version 2)
Quarter: 2020Q3

REPORT INFORMATION
  Report Type: Spontaneous
  Country: US (occurrence: US)
  Receive Date: 20200630
  Receipt Date: 20200708
  Transmission Date: 20201103
  Serious: Yes (Life-Threatening, Hospitalization, Other)
  Sender: FDA-Public Use
  Company Number: US-GLENMARK PHARMACEUTICALS-2020GMK048309

PATIENT
  Age: 70 Year
  Sex: Female

DRUGS (22)
  1. DIVALPROEX SODIUM. [Concomitant]
     Active Substance: DIVALPROEX SODIUM
     Indication: PRODUCT USED FOR UNKNOWN INDICATION
     Dosage: 1250 MILLIGRAM, HS
     Route: 048
  2. HYDRALAZINE HCL [Interacting]
     Active Substance: HYDRALAZINE HYDROCHLORIDE
     Indication: HYPERTENSION
     Dosage: 100 MILLIGRAM, TID
     Route: 048
  3. ISOSORBIDE DINITRATE. [Interacting]
     Active Substance: ISOSORBIDE DINITRATE
     Indication: HYPERTENSION
     Dosage: 60 MILLIGRAM, BID
     Route: 048
  4. ZIPRASIDONE. [Interacting]
     Active Substance: ZIPRASIDONE
     Indication: DELUSION
     Dosage: 100 MILLIGRAM, BID
     Route: 048
  5. ACETAMINOPHEN. [Concomitant]
     Active Substance: ACETAMINOPHEN
     Indication: PRODUCT USED FOR UNKNOWN INDICATION
     Dosage: 650 MILLIGRAM, PRN (QID)
     Route: 048
  6. CLOZAPINE. [Interacting]
     Active Substance: CLOZAPINE
     Dosage: 50 MILLIGRAM, BID
     Route: 048
  7. ZIPRASIDONE. [Interacting]
     Active Substance: ZIPRASIDONE
     Indication: MANIA
     Dosage: 40 MILLIGRAM, BID
     Route: 065
  8. AMLODIPINE [Concomitant]
     Active Substance: AMLODIPINE BESYLATE
     Indication: PRODUCT USED FOR UNKNOWN INDICATION
     Dosage: 10 MILLIGRAM, QD
     Route: 048
  9. HEPARIN [Concomitant]
     Active Substance: HEPARIN SODIUM
     Indication: PRODUCT USED FOR UNKNOWN INDICATION
     Dosage: UNK, TID (5000 UNITS)
     Route: 058
  10. MULTIVITAMIN                       /00097801/ [Concomitant]
     Active Substance: VITAMINS
     Indication: PRODUCT USED FOR UNKNOWN INDICATION
     Dosage: UNK, QD
     Route: 048
  11. BRIMONIDINE [Concomitant]
     Active Substance: BRIMONIDINE TARTRATE
     Indication: PRODUCT USED FOR UNKNOWN INDICATION
     Dosage: UNK, QD
     Route: 065
  12. CLOZAPINE. [Interacting]
     Active Substance: CLOZAPINE
     Indication: MANIA
     Dosage: 12.5 MILLIGRAM, BID (FOR 6 DOSE, THEN DOSE WAS TITRATED TO 25 MG TWICE DAILY)
     Route: 065
  13. CLOZAPINE. [Interacting]
     Active Substance: CLOZAPINE
     Indication: DELUSION
     Dosage: 25 MILLIGRAM, BID (FOR THREE DOSE, THEN DOSE TITRATED TO 50 MG TWICE DAILY)
     Route: 065
  14. FERROUS SULFATE. [Concomitant]
     Active Substance: FERROUS SULFATE
     Indication: PRODUCT USED FOR UNKNOWN INDICATION
     Dosage: 650 MILLIGRAM, TID
     Route: 048
  15. DOCUSATE [Concomitant]
     Active Substance: DOCUSATE
     Indication: PRODUCT USED FOR UNKNOWN INDICATION
     Dosage: 200 MILLIGRAM, QD
     Route: 048
  16. LORAZEPAM. [Concomitant]
     Active Substance: LORAZEPAM
     Indication: PRODUCT USED FOR UNKNOWN INDICATION
     Dosage: 1 MILLIGRAM, TID
     Route: 048
  17. DONEPEZIL. [Concomitant]
     Active Substance: DONEPEZIL
     Indication: PRODUCT USED FOR UNKNOWN INDICATION
     Dosage: 10 MILLIGRAM, QD
     Route: 048
  18. CARVEDILOL. [Suspect]
     Active Substance: CARVEDILOL
     Indication: HYPERTENSION
     Dosage: 25 MILLIGRAM, BID
     Route: 048
  19. ASPIRIN                            /00002701/ [Interacting]
     Active Substance: ASPIRIN
     Indication: HYPERTENSION
     Dosage: 81 MILLIGRAM, QD
     Route: 048
  20. CLONIDINE. [Interacting]
     Active Substance: CLONIDINE
     Indication: HYPERTENSION
     Dosage: UNK (0.3 MG/24 H)
     Route: 065
  21. ATORVASTATIN [Concomitant]
     Active Substance: ATORVASTATIN
     Indication: PRODUCT USED FOR UNKNOWN INDICATION
     Dosage: 40 MILLIGRAM, QD
     Route: 048
  22. TRAZODONE [Concomitant]
     Active Substance: TRAZODONE HYDROCHLORIDE
     Indication: PRODUCT USED FOR UNKNOWN INDICATION
     Dosage: 100 MILLIGRAM, PRN (HS)
     Route: 048

REACTIONS (4)
  - Hypothermia [Recovered/Resolved]
  - Electrocardiogram QT prolonged [Unknown]
  - Procalcitonin increased [Unknown]
  - Drug interaction [Unknown]
